FAERS Safety Report 8424501-4 (Version None)
Quarter: 2012Q2

REPORT INFORMATION
  Report Type: 
  Country: None (occurrence: None)
  Receive Date: 20120611
  Receipt Date: 20120605
  Transmission Date: 20120825
  Serious: Yes (Hospitalization)
  Sender: FDA-Public Use
  Company Number: US-ASTRAZENECA-2011SE41525

PATIENT
  Age: 51 Year
  Sex: Female
  Weight: 95.3 kg

DRUGS (44)
  1. NEXIUM [Suspect]
     Indication: GASTROOESOPHAGEAL REFLUX DISEASE
     Route: 048
     Dates: start: 20050101, end: 20120101
  2. NEXIUM [Suspect]
     Route: 048
     Dates: start: 20100105
  3. PLAVIX [Concomitant]
     Dates: start: 20070614
  4. BENICAR HCT [Concomitant]
     Dosage: 40/12.5 MILLIGRAMS DAILY
     Dates: start: 20100105
  5. LORTAB/NORCO [Concomitant]
     Dosage: 10/325 MILLIGRAMS ONE BY MOUTH EVERY FOUR HOURS AS NEEDED
     Dates: start: 20100105
  6. HYDROCHLOROTHIAZIDE [Concomitant]
     Dates: start: 20080409
  7. ISOSORBIDE DINITRATE [Concomitant]
     Dates: start: 20080409
  8. BENICAR HCT [Concomitant]
     Dosage: 40/12.5MG
  9. LIDOCAINE [Concomitant]
     Indication: TRIGGER FINGER
     Dosage: 0.5CC
     Dates: start: 20081007
  10. ASPIRIN [Concomitant]
     Dates: start: 20070614
  11. ULTRAM [Concomitant]
     Dates: start: 20080409
  12. OMNICEF [Concomitant]
     Dates: start: 20080507
  13. ULTRAM [Concomitant]
     Route: 048
     Dates: start: 20090331, end: 20090414
  14. NEXIUM [Suspect]
     Route: 048
     Dates: start: 20080409
  15. ISOSORBIDE DINITRATE [Concomitant]
     Route: 048
     Dates: start: 20090331, end: 20090414
  16. PROVERA [Concomitant]
     Indication: HAEMOSTASIS
  17. FERROUS SULFATE TAB [Concomitant]
     Indication: ANAEMIA
  18. LORTAB/NORCO [Concomitant]
     Indication: PAIN
     Dosage: 7.5 MG FOUR TIMES A DAY
     Dates: start: 20081007
  19. KENALOG [Concomitant]
     Dosage: 40 MG NEBULIZED TWO TIMES DAILY ADD 40 MG TO AM AND PM NEB TREATMENT
     Route: 048
     Dates: start: 20090331, end: 20090414
  20. HYDROCHLOROTHIAZIDE [Concomitant]
     Dosage: TO BE TAKEN 1/2
     Route: 048
     Dates: start: 20090331, end: 20090414
  21. ULTRAM [Concomitant]
     Route: 048
     Dates: start: 20100105
  22. KETORALAC [Concomitant]
     Dosage: 10 MILLIGRAMS BY MOUTH AS NEEDED
     Route: 048
     Dates: start: 20100105
  23. CALCIUM [Concomitant]
     Indication: OSTEOPOROSIS
     Dates: start: 20050101
  24. PLAVIX [Concomitant]
  25. ASPIRIN [Concomitant]
     Dates: start: 20080409
  26. ASPIRIN [Concomitant]
     Dosage: DAILY
     Dates: start: 20100105
  27. HYDROCHLOROTHIAZIDE [Concomitant]
     Dates: start: 20070614
  28. LIPITOR [Concomitant]
     Dates: start: 20080609
  29. TEMAZEPAM [Concomitant]
     Route: 048
     Dates: start: 20090331, end: 20090405
  30. NEXIUM [Suspect]
     Route: 048
     Dates: start: 20080101
  31. ISOSORBIDE DINITRATE [Concomitant]
  32. ATACAND HCT [Concomitant]
     Dosage: 32/12.5 MG
     Dates: start: 20080409
  33. ATACAND [Concomitant]
     Dosage: 32/12.5
     Dates: start: 20080409
  34. SPIRONOLACT [Concomitant]
  35. SINGULAIR [Concomitant]
  36. KENALOG [Concomitant]
     Indication: TRIGGER FINGER
     Dosage: 0.5 CC
     Dates: start: 20081007
  37. ATACAND [Concomitant]
     Route: 048
     Dates: start: 20090331, end: 20090414
  38. NEXIUM [Suspect]
     Route: 048
     Dates: start: 20060101
  39. NEXIUM [Suspect]
     Route: 048
     Dates: start: 20090331, end: 20090414
  40. ISOSORBIDE DINITRATE [Concomitant]
     Dosage: ER 30 MG
     Dates: start: 20100105
  41. GABAPENTIN [Concomitant]
  42. GABAPENTIN [Concomitant]
  43. ATACAND HCT [Concomitant]
     Dosage: 32/12.5MG DAILY
     Route: 048
  44. CRESTOR [Concomitant]
     Dates: start: 20070614

REACTIONS (9)
  - ANKLE FRACTURE [None]
  - OSTEOPOROSIS [None]
  - SCAR [None]
  - LIMB CRUSHING INJURY [None]
  - EMOTIONAL DISTRESS [None]
  - RADIUS FRACTURE [None]
  - LOWER LIMB FRACTURE [None]
  - UPPER LIMB FRACTURE [None]
  - HUMERUS FRACTURE [None]
